FAERS Safety Report 8654521 (Version 6)
Quarter: 2013Q4

REPORT INFORMATION
  Report Type: Report from Study
  Country: US (occurrence: US)
  Receive Date: 20120709
  Receipt Date: 20131003
  Transmission Date: 20140711
  Serious: Yes (Hospitalization)
  Sender: FDA-Public Use
  Company Number: US-ACTELION-A-NJ2012-63959

PATIENT
  Age: 82 Year
  Sex: Female

DRUGS (4)
  1. TRACLEER [Suspect]
     Indication: PULMONARY ARTERIAL HYPERTENSION
     Dosage: UNK
     Route: 048
  2. TRACLEER [Suspect]
     Dosage: UNK
     Route: 048
  3. SILDENAFIL [Concomitant]
  4. COUMADIN [Concomitant]

REACTIONS (8)
  - Gout [Unknown]
  - Limb discomfort [Unknown]
  - Fluid retention [Unknown]
  - Oedema peripheral [Unknown]
  - Dizziness [Unknown]
  - Fatigue [Unknown]
  - Drug dose omission [Unknown]
  - Treatment noncompliance [Unknown]
